FAERS Safety Report 21067277 (Version 1)
Quarter: 2022Q3

REPORT INFORMATION
  Report Type: Spontaneous
  Country: US (occurrence: US)
  Receive Date: 20220712
  Receipt Date: 20220712
  Transmission Date: 20221027
  Serious: Yes (Other)
  Sender: FDA-Public Use
  Company Number: US-SUN PHARMACEUTICAL INDUSTRIES LTD-2022R1-343783

PATIENT
  Age: 18 Year
  Sex: Male
  Weight: 17.4 kg

DRUGS (3)
  1. FERROUS SULFATE [Suspect]
     Active Substance: FERROUS SULFATE
     Indication: Iron overload
     Dosage: UNK
     Route: 065
  2. PREDNISOLONE [Suspect]
     Active Substance: PREDNISOLONE
     Indication: Congenital aplastic anaemia
     Dosage: UNK
     Route: 065
  3. DEFERASIROX [Concomitant]
     Active Substance: DEFERASIROX
     Indication: Chelation therapy
     Dosage: UNK
     Route: 065

REACTIONS (4)
  - Growth hormone deficiency [Unknown]
  - Secondary adrenocortical insufficiency [Unknown]
  - Primary hypothyroidism [Unknown]
  - Hypoparathyroidism [Unknown]
